FAERS Safety Report 6051371-4 (Version None)
Quarter: 2009Q1

REPORT INFORMATION
  Report Type: 
  Country: None (occurrence: None)
  Receive Date: 20090121
  Receipt Date: 20090121
  Transmission Date: 20090719
  Serious: Yes (Other)
  Sender: FDA-Public Use
  Company Number: None

PATIENT
  Age: 12 Year
  Sex: Male
  Weight: 85.7298 kg

DRUGS (2)
  1. SEROQUEL [Suspect]
     Indication: BASAL GANGLION DEGENERATION
     Dosage: 200MG 2X'S PO
     Route: 048
     Dates: start: 20060618, end: 20080120
  2. SEROQUEL [Suspect]
     Indication: BASAL GANGLION DEGENERATION
     Dosage: 300MG  1 @ BEDTIME PO
     Route: 048
     Dates: start: 20060629, end: 20090120

REACTIONS (4)
  - LIVER FUNCTION TEST ABNORMAL [None]
  - OVERDOSE [None]
  - THYROID DISORDER [None]
  - WEIGHT INCREASED [None]
